FAERS Safety Report 23330432 (Version 2)
Quarter: 2024Q1

REPORT INFORMATION
  Report Type: Spontaneous
  Country: FR (occurrence: FR)
  Receive Date: 20231222
  Receipt Date: 20240226
  Transmission Date: 20240409
  Serious: Yes (Other)
  Sender: FDA-Public Use
  Company Number: FR-SA-SAC20231031000505

PATIENT
  Age: 59 Year
  Sex: Male

DRUGS (4)
  1. DUPIXENT [Suspect]
     Active Substance: DUPILUMAB
     Indication: Nasal polyps
     Dosage: 300 MG, Q3W
     Route: 058
     Dates: start: 20230103
  2. AFLIBERCEPT [Concomitant]
     Active Substance: AFLIBERCEPT
     Indication: Central serous chorioretinopathy
     Dosage: UNK, Q3M
     Route: 031
     Dates: start: 2019
  3. SINGULAIR [Concomitant]
     Active Substance: MONTELUKAST SODIUM
     Indication: Asthma
  4. BILASTINE [Concomitant]
     Active Substance: BILASTINE
     Indication: Asthma

REACTIONS (6)
  - Toxic skin eruption [Unknown]
  - Skin lesion [Recovering/Resolving]
  - Rash macular [Unknown]
  - Rash [Recovering/Resolving]
  - Product prescribing issue [Unknown]
  - Inappropriate schedule of product administration [Unknown]

NARRATIVE: CASE EVENT DATE: 20230101
